FAERS Safety Report 6269146-X (Version None)
Quarter: 2009Q3

REPORT INFORMATION
  Report Type: 
  Country: None (occurrence: None)
  Receive Date: 20090715
  Receipt Date: 20090709
  Transmission Date: 20100115
  Serious: Yes (Hospitalization)
  Sender: FDA-Public Use
  Company Number: US-EISAI INC.-E3810-02979-SPO-US

PATIENT
  Sex: Female

DRUGS (4)
  1. ACIPHEX [Suspect]
     Route: 048
     Dates: start: 20090101, end: 20090101
  2. BIRTH CONTROL PILL [Concomitant]
     Route: 048
  3. STEROIDS [Concomitant]
     Indication: URTICARIA
     Route: 048
  4. KARAFATE [Concomitant]

REACTIONS (4)
  - ERYTHEMA [None]
  - GENERALISED ERYTHEMA [None]
  - SWELLING [None]
  - SWELLING FACE [None]
